FAERS Safety Report 13900487 (Version 1)
Quarter: 2017Q3

REPORT INFORMATION
  Report Type: Spontaneous
  Country: US (occurrence: None)
  Receive Date: 20170818
  Receipt Date: 20170818
  Transmission Date: 20171127
  Serious: Yes (Death)
  Sender: FDA-Public Use
  Company Number: None

PATIENT
  Age: 67 Year
  Sex: Male
  Weight: 138.35 kg

DRUGS (1)
  1. LEVOFLOXACIN. [Suspect]
     Active Substance: LEVOFLOXACIN
     Route: 048
     Dates: start: 20170811, end: 20170814

REACTIONS (6)
  - Pulmonary embolism [None]
  - Dyspnoea [None]
  - Hypercoagulation [None]
  - International normalised ratio decreased [None]
  - Electrocardiogram QT prolonged [None]
  - Ventricular fibrillation [None]

NARRATIVE: CASE EVENT DATE: 20170814
